FAERS Safety Report 17688083 (Version 1)
Quarter: 2020Q2

REPORT INFORMATION
  Report Type: Report from Study
  Country: IN (occurrence: IN)
  Receive Date: 20200421
  Receipt Date: 20200421
  Transmission Date: 20200714
  Serious: Yes (Death, Hospitalization)
  Sender: FDA-Public Use
  Company Number: IN-EISAI MEDICAL RESEARCH-EC-2020-073493

PATIENT
  Age: 71 Year
  Sex: Male

DRUGS (1)
  1. LENVIMA [Suspect]
     Active Substance: LENVATINIB
     Indication: HEPATOCELLULAR CARCINOMA
     Route: 048
     Dates: start: 20190611, end: 20200101

REACTIONS (4)
  - Haematemesis [Not Recovered/Not Resolved]
  - Cardiac arrest [Fatal]
  - Renal failure [Fatal]
  - Hepatic failure [Fatal]

NARRATIVE: CASE EVENT DATE: 20200101
